FAERS Safety Report 9404582 (Version 1)
Quarter: 2013Q3

REPORT INFORMATION
  Report Type: Spontaneous
  Country: IN (occurrence: IN)
  Receive Date: 20130717
  Receipt Date: 20130717
  Transmission Date: 20140515
  Serious: Yes (Other)
  Sender: FDA-Public Use
  Company Number: IN-PFIZER INC-2013203824

PATIENT
  Age: 58 Year
  Sex: Female

DRUGS (3)
  1. CYTARABINE [Suspect]
     Indication: ACUTE MYELOID LEUKAEMIA
     Dosage: 100 MG/M2/DAY FOR 7 DAYS
     Dates: start: 201006
  2. DAUNORUBICIN [Concomitant]
     Indication: ACUTE MYELOID LEUKAEMIA
     Dosage: 60MG/M2 /DAY FOR 3 DAYS
     Dates: start: 201006
  3. CYTOSINE ARABINOSIDE [Concomitant]
     Indication: ACUTE MYELOID LEUKAEMIA
     Dosage: HIGH DOSE OF 3 GM/M2/DOSE

REACTIONS (3)
  - Bronchopulmonary aspergillosis [Unknown]
  - Mucous membrane disorder [Unknown]
  - Neutropenia [Unknown]
